FAERS Safety Report 9830542 (Version 2)
Quarter: 2014Q1

REPORT INFORMATION
  Report Type: Report from Study
  Country: AU (occurrence: AU)
  Receive Date: 20140120
  Receipt Date: 20140120
  Transmission Date: 20141002
  Serious: Yes (Hospitalization)
  Sender: FDA-Public Use
  Company Number: AU-BRISTOL-MYERS SQUIBB COMPANY-15718372

PATIENT
  Age: 59 Year
  Sex: Female

DRUGS (4)
  1. IPILIMUMAB [Suspect]
     Indication: MALIGNANT MELANOMA
     Route: 042
     Dates: start: 20110411, end: 20110411
  2. CIPRAMIL [Concomitant]
     Dates: start: 20110214
  3. ASPIRIN [Concomitant]
     Dates: start: 20110301
  4. SYMBICORT [Concomitant]

REACTIONS (1)
  - Lung infiltration [Recovered/Resolved]
